FAERS Safety Report 9847546 (Version 3)
Quarter: 2014Q1

REPORT INFORMATION
  Report Type: Report from Study
  Country: JP (occurrence: JP)
  Receive Date: 20140128
  Receipt Date: 20140312
  Transmission Date: 20141002
  Serious: Yes (Other)
  Sender: FDA-Public Use
  Company Number: JP-ROCHE-1338028

PATIENT
  Age: 86 Year
  Sex: Male

DRUGS (5)
  1. METHOXY POLYETHYLENE GLYCOL-EPOETIN BETA [Suspect]
     Indication: NEPHROGENIC ANAEMIA
     Route: 058
     Dates: start: 20130322, end: 20130904
  2. METHOXY POLYETHYLENE GLYCOL-EPOETIN BETA [Suspect]
     Indication: NEPHROGENIC ANAEMIA
     Route: 058
     Dates: start: 20130918, end: 20131118
  3. NORVASC [Concomitant]
     Route: 048
  4. DIGOXIN [Concomitant]
     Dosage: DRUG REPORTED AS HALFDIGOXIN
     Route: 048
  5. GASTROM [Concomitant]
     Route: 048

REACTIONS (1)
  - Transient ischaemic attack [Recovered/Resolved]
